FAERS Safety Report 20066750 (Version 1)
Quarter: 2021Q4

REPORT INFORMATION
  Report Type: Spontaneous
  Country: None (occurrence: US)
  Receive Date: 20211115
  Receipt Date: 20211115
  Transmission Date: 20220304
  Serious: No
  Sender: FDA-Public Use
  Company Number: US-AKCEA THERAPEUTICS, INC.-2021IS001550

PATIENT
  Age: 73 Year
  Sex: Male
  Weight: 61.318 kg

DRUGS (2)
  1. TEGSEDI [Suspect]
     Active Substance: INOTERSEN SODIUM
     Indication: Hereditary neuropathic amyloidosis
     Route: 058
     Dates: start: 20190717
  2. DEVICE [Suspect]
     Active Substance: DEVICE

REACTIONS (1)
  - Injection site erythema [Unknown]
